FAERS Safety Report 18220573 (Version 1)
Quarter: 2020Q3

REPORT INFORMATION
  Report Type: Spontaneous
  Country: US (occurrence: US)
  Receive Date: 20200902
  Receipt Date: 20200902
  Transmission Date: 20201103
  Serious: No
  Sender: FDA-Public Use
  Company Number: US-009507513-2009USA000467

PATIENT
  Sex: Female

DRUGS (1)
  1. NEXPLANON [Suspect]
     Active Substance: ETONOGESTREL
     Indication: CONTRACEPTION
     Dosage: 1 DOSE EVERY 3 YEARS
     Route: 059
     Dates: start: 20190802

REACTIONS (3)
  - Headache [Recovering/Resolving]
  - Weight decreased [Recovering/Resolving]
  - Amenorrhoea [Recovering/Resolving]
